FAERS Safety Report 18043416 (Version 2)
Quarter: 2020Q3

REPORT INFORMATION
  Report Type: Report from Study
  Country: ZA (occurrence: ZA)
  Receive Date: 20200720
  Receipt Date: 20200721
  Transmission Date: 20201103
  Serious: Yes (Hospitalization, Other)
  Sender: FDA-Public Use
  Company Number: PHHY2019ZA181947

PATIENT
  Age: 41 Year
  Sex: Female

DRUGS (1)
  1. TUVIGIN [Suspect]
     Active Substance: FINGOLIMOD HYDROCHLORIDE
     Indication: MULTIPLE SCLEROSIS RELAPSE
     Dosage: 0.5 MG, QD
     Route: 048
     Dates: start: 20190726

REACTIONS (9)
  - Muscular weakness [Unknown]
  - Palpitations [Unknown]
  - Pyrexia [Recovering/Resolving]
  - Multiple sclerosis relapse [Recovering/Resolving]
  - Oropharyngeal pain [Recovering/Resolving]
  - Burning sensation [Not Recovered/Not Resolved]
  - Dyspnoea [Unknown]
  - Ataxia [Unknown]
  - Pharyngitis [Recovering/Resolving]

NARRATIVE: CASE EVENT DATE: 20190728
